FAERS Safety Report 7588686-4 (Version None)
Quarter: 2011Q3

REPORT INFORMATION
  Report Type: 
  Country: None (occurrence: None)
  Receive Date: 20110705
  Receipt Date: 20110622
  Transmission Date: 20111222
  Serious: Yes (Other)
  Sender: FDA-Public Use
  Company Number: US-ELI_LILLY_AND_COMPANY-US201105006314

PATIENT
  Sex: Male
  Weight: 81.179 kg

DRUGS (18)
  1. FORTEO [Suspect]
     Indication: OSTEOPOROSIS
     Dosage: 20 UG, QD
     Route: 065
     Dates: start: 20110404, end: 20110428
  2. CELEBREX [Concomitant]
     Dosage: 200 MG, UNK
  3. MULTI-VITAMINS [Concomitant]
     Route: 048
  4. AMBIEN [Concomitant]
     Dosage: 5 MG, UNK
  5. VITAMIN K2 [Concomitant]
  6. VITAMINS                           /90003601/ [Concomitant]
     Dosage: UNK, UNKNOWN
     Route: 065
  7. PRASTERONE [Concomitant]
     Dosage: 25 MG, UNK
  8. TESTOSTERONE [Concomitant]
     Route: 062
  9. FISH OIL [Concomitant]
     Dosage: 1000 MG, UNK
  10. PANTOPRAZOLE [Concomitant]
     Dosage: 40 MG, UNK
  11. PRASTERONE [Concomitant]
     Dosage: 52 MG, UNK
  12. FERROUS SULFATE TAB [Concomitant]
     Dosage: 325 MG, UNK
  13. QUINAPRIL HCL [Concomitant]
     Dosage: 20 MG, QD
     Route: 065
  14. CALCIUM CARBONATE [Concomitant]
     Dosage: 500 MG, UNK
  15. VICODIN [Concomitant]
     Dosage: 1 DF, UNK
  16. NIACIN [Concomitant]
     Dosage: 500 MG, UNK
  17. GLUCOSAMINE W/CHONDROITIN SULF./MANGAN./VIT C [Concomitant]
     Dosage: 1 DF, UNK
  18. VITAMIN D [Concomitant]
     Dosage: 1000 U, UNK

REACTIONS (5)
  - SPINAL FRACTURE [None]
  - MULTIPLE MYELOMA [None]
  - METASTASES TO BONE [None]
  - NEOPLASM MALIGNANT [None]
  - WEIGHT DECREASED [None]
